FAERS Safety Report 17229093 (Version 3)
Quarter: 2020Q1

REPORT INFORMATION
  Report Type: Spontaneous
  Country: US (occurrence: US)
  Receive Date: 20200103
  Receipt Date: 20200212
  Transmission Date: 20200409
  Serious: Yes (Hospitalization)
  Sender: FDA-Public Use
  Company Number: NVSC2019US084182

PATIENT
  Sex: Female

DRUGS (1)
  1. KISQALI [Suspect]
     Active Substance: RIBOCICLIB
     Indication: BREAST CANCER FEMALE
     Dosage: 600 MG, QD
     Route: 048
     Dates: start: 20191211

REACTIONS (5)
  - Vomiting [Unknown]
  - Pneumonia [Unknown]
  - Abdominal discomfort [Unknown]
  - Dehydration [Unknown]
  - Blood glucose decreased [Unknown]
